FAERS Safety Report 19986718 (Version 1)
Quarter: 2021Q4

REPORT INFORMATION
  Report Type: Spontaneous
  Country: US (occurrence: US)
  Receive Date: 20211022
  Receipt Date: 20211022
  Transmission Date: 20220303
  Serious: Yes (Other)
  Sender: FDA-Public Use
  Company Number: US-GLAXOSMITHKLINE-US2021GSK217862

PATIENT
  Sex: Female

DRUGS (2)
  1. ZANTAC [Suspect]
     Active Substance: RANITIDINE HYDROCHLORIDE
     Indication: Gallbladder disorder
     Dosage: UNKNOWN AT THIS TIME, QD
     Route: 065
     Dates: start: 199101, end: 199601
  2. ZANTAC [Suspect]
     Active Substance: RANITIDINE HYDROCHLORIDE
     Indication: Gallbladder disorder
     Dosage: UNKNOWN AT THIS TIME, QD
     Route: 065
     Dates: start: 199101, end: 199601

REACTIONS (1)
  - Breast cancer [Unknown]
